FAERS Safety Report 25307514 (Version 1)
Quarter: 2025Q2

REPORT INFORMATION
  Report Type: Spontaneous
  Country: ES (occurrence: ES)
  Receive Date: 20250513
  Receipt Date: 20250513
  Transmission Date: 20250717
  Serious: Yes (Other)
  Sender: AMGEN
  Company Number: ES-AMGEN-ESPSP2025091715

PATIENT
  Age: 68 Year
  Sex: Female

DRUGS (2)
  1. PROLIA [Suspect]
     Active Substance: DENOSUMAB
     Indication: Osteoporosis
     Dosage: 60 MILLIGRAM, Q6MO
     Route: 058
     Dates: start: 20160127, end: 202405
  2. ZOLEDRONIC ACID [Suspect]
     Active Substance: ZOLEDRONIC ACID
     Indication: Osteoporosis
     Route: 040
     Dates: start: 20240807, end: 20240807

REACTIONS (3)
  - Tenosynovitis [Recovered/Resolved]
  - Polyarthritis [Recovered/Resolved]
  - Chondrocalcinosis [Not Recovered/Not Resolved]

NARRATIVE: CASE EVENT DATE: 20240808
